FAERS Safety Report 16514623 (Version 3)
Quarter: 2019Q3

REPORT INFORMATION
  Report Type: Spontaneous
  Country: NL (occurrence: NL)
  Receive Date: 20190702
  Receipt Date: 20190725
  Transmission Date: 20191004
  Serious: Yes (Other)
  Sender: FDA-Public Use
  Company Number: NL-TEVA-2019-NL-1070882

PATIENT
  Sex: Female

DRUGS (2)
  1. ISOTRETINOINE [Suspect]
     Active Substance: ISOTRETINOIN
     Indication: ACNE
     Dosage: 1X AM TAG
     Dates: start: 2019, end: 201904
  2. TRECLINAC GEL [Concomitant]
     Dosage: 1 DD

REACTIONS (4)
  - Infection [Recovering/Resolving]
  - Infection susceptibility increased [Recovering/Resolving]
  - Upper respiratory tract infection [Recovering/Resolving]
  - Oral herpes [Recovering/Resolving]
